FAERS Safety Report 14061333 (Version 3)
Quarter: 2017Q4

REPORT INFORMATION
  Report Type: Spontaneous
  Country: US (occurrence: US)
  Receive Date: 20171009
  Receipt Date: 20171114
  Transmission Date: 20180321
  Serious: Yes (Other)
  Sender: FDA-Public Use
  Company Number: PHEH2017US031779

PATIENT
  Sex: Female

DRUGS (1)
  1. KISQALI [Suspect]
     Active Substance: RIBOCICLIB
     Indication: BREAST CANCER
     Dosage: 600 MG, QD
     Route: 048
     Dates: start: 20170913

REACTIONS (4)
  - Metastases to bone [Unknown]
  - Insomnia [Recovering/Resolving]
  - Constipation [Recovering/Resolving]
  - Pharyngitis streptococcal [Recovering/Resolving]
